FAERS Safety Report 21510375 (Version 1)
Quarter: 2022Q4

REPORT INFORMATION
  Report Type: Report from Study
  Country: US (occurrence: US)
  Receive Date: 20221026
  Receipt Date: 20221026
  Transmission Date: 20230113
  Serious: Yes (Other)
  Sender: FDA-Public Use
  Company Number: US-JAZZ-2022-US-028028

PATIENT
  Age: 68 Year
  Sex: Female

DRUGS (45)
  1. XYWAV [Suspect]
     Active Substance: CALCIUM OXYBATE\MAGNESIUM OXYBATE\POTASSIUM OXYBATE\SODIUM OXYBATE
     Indication: Hypersomnia
     Dosage: 2.25 GRAM, BID
     Dates: start: 20220824
  2. XYWAV [Suspect]
     Active Substance: CALCIUM OXYBATE\MAGNESIUM OXYBATE\POTASSIUM OXYBATE\SODIUM OXYBATE
     Dosage: 1 GRAM, BID
  3. XYWAV [Suspect]
     Active Substance: CALCIUM OXYBATE\MAGNESIUM OXYBATE\POTASSIUM OXYBATE\SODIUM OXYBATE
     Dosage: 2.5 GRAM, BID
  4. XYWAV [Suspect]
     Active Substance: CALCIUM OXYBATE\MAGNESIUM OXYBATE\POTASSIUM OXYBATE\SODIUM OXYBATE
     Dosage: 3 GRAM, BID
  5. XYWAV [Suspect]
     Active Substance: CALCIUM OXYBATE\MAGNESIUM OXYBATE\POTASSIUM OXYBATE\SODIUM OXYBATE
     Dosage: 1G FOR 1 WEEK THEN 2.5G FOR 2 WEEKS FOR 2 DOSES NIGHTLY
  6. AZELASTINE [Suspect]
     Active Substance: AZELASTINE
     Indication: Product used for unknown indication
     Dosage: UNK
  7. LUBIPROSTONE [Suspect]
     Active Substance: LUBIPROSTONE
     Indication: Product used for unknown indication
     Dosage: UNK
     Dates: start: 20220907
  8. TYLENOL [Concomitant]
     Active Substance: ACETAMINOPHEN
     Indication: Product used for unknown indication
  9. ZYLOPRIM [Concomitant]
     Active Substance: ALLOPURINOL
     Indication: Product used for unknown indication
  10. ASPIRIN [Concomitant]
     Active Substance: ASPIRIN
  11. ALIGN [Concomitant]
     Active Substance: BIFIDOBACTERIUM LONGUM SUBSP. INFANTIS
     Route: 048
  12. CALCIUM CARBONATE [Concomitant]
     Active Substance: CALCIUM CARBONATE
  13. CARBOXYMETHYLCELLULOSE [Concomitant]
     Active Substance: CARBOXYMETHYLCELLULOSE
  14. VITAMIN D3 [Concomitant]
     Active Substance: CHOLECALCIFEROL
     Dosage: 5000 UNITS
  15. CHOLESTYRAMINE [Concomitant]
     Active Substance: CHOLESTYRAMINE
  16. CYANOCOBALAMIN [Concomitant]
     Active Substance: CYANOCOBALAMIN
  17. COLACE [Concomitant]
     Active Substance: DOCUSATE SODIUM
  18. PEPCID AC [Concomitant]
     Active Substance: FAMOTIDINE
  19. FLONASE ALLERGY RELIEF [Concomitant]
     Active Substance: FLUTICASONE PROPIONATE
  20. FUROSEMIDE\POTASSIUM CHLORIDE [Concomitant]
     Active Substance: FUROSEMIDE\POTASSIUM CHLORIDE
  21. NEURONTIN [Concomitant]
     Active Substance: GABAPENTIN
  22. HYDROCORTISONE [Concomitant]
     Active Substance: HYDROCORTISONE
     Dosage: 2.5% RECTAL CREAM
  23. HYDROCORTISONE [Concomitant]
     Active Substance: HYDROCORTISONE
     Dosage: 25MG SUPPOSITORY
  24. HYOSCYAMINE [Concomitant]
     Active Substance: HYOSCYAMINE
  25. ARTIFICIAL TEARS [HYPROMELLOSE] [Concomitant]
  26. GAMMAGARD [Concomitant]
     Active Substance: HUMAN IMMUNOGLOBULIN G
  27. CORLANOR [Concomitant]
     Active Substance: IVABRADINE HYDROCHLORIDE
  28. LEVOTHYROXINE [Concomitant]
     Active Substance: LEVOTHYROXINE
  29. CYTOMEL [Concomitant]
     Active Substance: LIOTHYRONINE SODIUM
  30. COENZYME Q10 [Concomitant]
     Active Substance: DIETARY SUPPLEMENT\UBIDECARENONE
  31. LISINOPRIL [Concomitant]
     Active Substance: LISINOPRIL
     Dosage: UNK
  32. IMODIUM A-D [Concomitant]
     Active Substance: LOPERAMIDE HYDROCHLORIDE
  33. METHYLPHENIDATE HYDROCHLORIDE [Concomitant]
     Active Substance: METHYLPHENIDATE HYDROCHLORIDE
  34. PROAMATINE [Concomitant]
     Active Substance: MIDODRINE HYDROCHLORIDE
  35. BACTROBAN [Concomitant]
     Active Substance: MUPIROCIN\MUPIROCIN CALCIUM
  36. OMEGA-3 FATTY ACIDS [Concomitant]
     Active Substance: OMEGA-3 FATTY ACIDS
     Dosage: 649-1200 MG
  37. ZOFRAN 4 ZYDIS [Concomitant]
  38. POTASSIUM CHLORIDE [Concomitant]
     Active Substance: POTASSIUM CHLORIDE
  39. RIBOFLAVIN [Concomitant]
     Active Substance: RIBOFLAVIN
  40. REQUIP XL [Concomitant]
     Active Substance: ROPINIROLE HYDROCHLORIDE
  41. ZOCOR [Concomitant]
     Active Substance: SIMVASTATIN
  42. VITAMIN B1 [Concomitant]
     Active Substance: THIAMINE HYDROCHLORIDE
  43. TIOTROPIUM BROMIDE [Concomitant]
     Active Substance: TIOTROPIUM BROMIDE
  44. TOBRADEX [Concomitant]
     Active Substance: DEXAMETHASONE\TOBRAMYCIN
  45. LINZESS [Concomitant]
     Active Substance: LINACLOTIDE
     Indication: Product used for unknown indication
     Dosage: UNK
     Dates: start: 20220917

REACTIONS (22)
  - Urinary retention [Unknown]
  - Hypoacusis [Unknown]
  - Hypotension [Unknown]
  - Dyspnoea [Recovered/Resolved]
  - Stenosis [Unknown]
  - Tendonitis [Unknown]
  - Alanine aminotransferase increased [Unknown]
  - Aspartate aminotransferase increased [Unknown]
  - Brain natriuretic peptide increased [Unknown]
  - Constipation [Unknown]
  - Cognitive disorder [Unknown]
  - Retching [Recovered/Resolved]
  - Hypopnoea [Unknown]
  - Hangover [Unknown]
  - Tremor [Unknown]
  - Dizziness [Unknown]
  - Muscle spasms [Unknown]
  - Feeling abnormal [Unknown]
  - Drug intolerance [Unknown]
  - Wrong dose [Unknown]
  - Intentional dose omission [Unknown]
  - Product administration interrupted [Unknown]

NARRATIVE: CASE EVENT DATE: 20220927
